FAERS Safety Report 24253933 (Version 1)
Quarter: 2024Q3

REPORT INFORMATION
  Report Type: Spontaneous
  Country: US (occurrence: US)
  Receive Date: 20240827
  Receipt Date: 20240827
  Transmission Date: 20241017
  Serious: No
  Sender: SANDOZ
  Company Number: US-SANDOZ-SDZ2024US075382

PATIENT
  Sex: Male

DRUGS (2)
  1. DORZOLAMIDE [Suspect]
     Active Substance: DORZOLAMIDE
     Indication: Product used for unknown indication
     Route: 065
  2. LATANOPROST [Suspect]
     Active Substance: LATANOPROST
     Indication: Product used for unknown indication
     Dosage: UNK,0.005% 2.5ML
     Route: 047

REACTIONS (3)
  - Eye irritation [Unknown]
  - Wrong technique in product usage process [Unknown]
  - Product storage error [Unknown]
